FAERS Safety Report 14346622 (Version 12)
Quarter: 2018Q4

REPORT INFORMATION
  Report Type: Report from Study
  Country: US (occurrence: US)
  Receive Date: 20180103
  Receipt Date: 20181008
  Transmission Date: 20190204
  Serious: Yes (Hospitalization, Disabling, Other)
  Sender: FDA-Public Use
  Company Number: US-ACTELION-A-NJ2017-164921

PATIENT
  Age: 50 Year
  Sex: Female
  Weight: 75.28 kg

DRUGS (6)
  1. OPSUMIT [Suspect]
     Active Substance: MACITENTAN
     Indication: PULMONARY HYPERTENSION
     Dosage: 10 MG, QD
     Route: 048
     Dates: start: 201710
  2. ADCIRCA [Concomitant]
     Active Substance: TADALAFIL
  3. TYVASO [Concomitant]
     Active Substance: TREPROSTINIL
  4. REMODULIN [Concomitant]
     Active Substance: TREPROSTINIL
     Route: 042
  5. ELIQUIS [Concomitant]
     Active Substance: APIXABAN
  6. SILDENAFIL CITRATE. [Concomitant]
     Active Substance: SILDENAFIL CITRATE

REACTIONS (29)
  - Lung disorder [Unknown]
  - Pulmonary hypertension [Unknown]
  - Renal failure [Recovered/Resolved]
  - Vomiting [Unknown]
  - Haemoglobin decreased [Unknown]
  - Decreased appetite [Recovering/Resolving]
  - Chest discomfort [Unknown]
  - Hospitalisation [Unknown]
  - Faeces discoloured [Unknown]
  - Transfusion [Unknown]
  - Malaise [Unknown]
  - Physical deconditioning [Recovering/Resolving]
  - Scleroderma [Recovering/Resolving]
  - Nausea [Unknown]
  - Dyspnoea [Unknown]
  - Polyp [Unknown]
  - Fluid retention [Recovered/Resolved]
  - Condition aggravated [Recovering/Resolving]
  - Rash [Unknown]
  - Pericardial effusion [Recovering/Resolving]
  - Pulmonary oedema [Recovering/Resolving]
  - Bedridden [Recovering/Resolving]
  - Haemorrhage [Unknown]
  - Vena cava filter insertion [Unknown]
  - Oedema [Recovered/Resolved]
  - Clostridium difficile colitis [Unknown]
  - Deep vein thrombosis [Recovering/Resolving]
  - Pulmonary arterial hypertension [Recovering/Resolving]
  - Aspiration pleural cavity [Unknown]

NARRATIVE: CASE EVENT DATE: 2017
